FAERS Safety Report 25377195 (Version 3)
Quarter: 2025Q3

REPORT INFORMATION
  Report Type: Spontaneous
  Country: US (occurrence: US)
  Receive Date: 20250530
  Receipt Date: 20250702
  Transmission Date: 20251021
  Serious: Yes (Hospitalization)
  Sender: CSL BEHRING
  Company Number: US-BEH-2025207696

PATIENT
  Sex: Female
  Weight: 9.18 kg

DRUGS (19)
  1. HIZENTRA [Suspect]
     Active Substance: HUMAN IMMUNOGLOBULIN G
     Indication: Combined immunodeficiency
     Dosage: 4 G, QOW
     Route: 058
     Dates: start: 202503
  2. TACROLIMUS [Concomitant]
     Active Substance: TACROLIMUS
     Route: 048
  3. GENTAMICIN SULFATE [Concomitant]
     Active Substance: GENTAMICIN SULFATE
  4. SIROLIMUS [Concomitant]
     Active Substance: SIROLIMUS
  5. LIDOCAINE\PRILOCAINE [Concomitant]
     Active Substance: LIDOCAINE\PRILOCAINE
  6. PROGRAF [Concomitant]
     Active Substance: TACROLIMUS
  7. CALCITRIOL [Concomitant]
     Active Substance: CALCITRIOL
  8. MOTRIN [Concomitant]
     Active Substance: IBUPROFEN
     Route: 048
  9. CITRIC ACID MONOHYDRATE\SODIUM CITRATE [Concomitant]
     Active Substance: CITRIC ACID MONOHYDRATE\SODIUM CITRATE
  10. CLOTRIMAZOLE [Concomitant]
     Active Substance: CLOTRIMAZOLE
     Indication: Rash
     Route: 061
  11. MUCOMYST [Concomitant]
     Active Substance: ACETYLCYSTEINE
  12. SODIUM CHLORIDE [Concomitant]
     Active Substance: SODIUM CHLORIDE
  13. NYSTATIN [Concomitant]
     Active Substance: NYSTATIN
     Dosage: UNK, BID
     Route: 061
  14. TOBRAMYCIN [Concomitant]
     Active Substance: TOBRAMYCIN
     Route: 055
  15. SULFAMETHOXAZOLE\TRIMETHOPRIM [Concomitant]
     Active Substance: SULFAMETHOXAZOLE\TRIMETHOPRIM
     Indication: Pneumonia
     Dosage: 5.9 ML, BID
     Route: 048
  16. FLUCONAZOLE [Concomitant]
     Active Substance: FLUCONAZOLE
     Dosage: 1.4 ML, QD
     Route: 048
  17. IRON\VITAMINS [Concomitant]
     Active Substance: IRON\VITAMINS
     Dosage: 1 ML, QD
  18. MAGNESIUM OXIDE [Concomitant]
     Active Substance: MAGNESIUM OXIDE
     Dosage: UNK, TID
  19. GLYCOPYRROLATE [Concomitant]
     Active Substance: GLYCOPYRROLATE
     Dosage: 1.5 ML, BID

REACTIONS (1)
  - Thymus disorder [Unknown]
